FAERS Safety Report 4281809-4 (Version None)
Quarter: 2004Q1

REPORT INFORMATION
  Report Type: 
  Country: None (occurrence: None)
  Receive Date: 20040112
  Receipt Date: 20030917
  Transmission Date: 20041129
  Serious: No
  Sender: FDA-Public Use
  Company Number: PHEH2003US08519

PATIENT
  Age: 8 Week
  Sex: Female

DRUGS (1)
  1. ELIDEL [Suspect]
     Indication: ECZEMA INFANTILE
     Dosage: BID, TOPICAL
     Route: 061
     Dates: start: 20030826, end: 20030916

REACTIONS (3)
  - CRYING [None]
  - NASAL CONGESTION [None]
  - VOMITING NEONATAL [None]
